FAERS Safety Report 19486282 (Version 1)
Quarter: 2021Q3

REPORT INFORMATION
  Report Type: Spontaneous
  Country: US (occurrence: US)
  Receive Date: 20210701
  Receipt Date: 20210701
  Transmission Date: 20211014
  Serious: No
  Sender: FDA-Public Use
  Company Number: None

PATIENT
  Age: 52 Year
  Sex: Female
  Weight: 70.76 kg

DRUGS (1)
  1. RINVOQ [Suspect]
     Active Substance: UPADACITINIB
     Indication: RHEUMATOID ARTHRITIS
     Dosage: OTHER DOSE:1 TABLET; AS DIRECTED??? INTERRUPTED?
     Route: 048
     Dates: start: 202005

REACTIONS (2)
  - Therapy interrupted [None]
  - Malaise [None]
